FAERS Safety Report 9748689 (Version 1)
Quarter: 2013Q4

REPORT INFORMATION
  Report Type: Spontaneous
  Country: NZ (occurrence: NZ)
  Receive Date: 20131212
  Receipt Date: 20131212
  Transmission Date: 20140711
  Serious: Yes (Death, Hospitalization, Other)
  Sender: FDA-Public Use
  Company Number: NZ-ELI_LILLY_AND_COMPANY-NZ201312002426

PATIENT
  Age: 45 Year
  Sex: Female

DRUGS (6)
  1. OLANZAPINE [Suspect]
     Indication: MENTAL DISORDER
     Dosage: 1 DF, UNKNOWN
     Route: 065
  2. QUETIAPINE [Suspect]
     Indication: MENTAL DISORDER
     Dosage: 1 DF, UNKNOWN
     Route: 065
  3. AMITRIPTYLINE [Suspect]
     Dosage: 1 DF, UNKNOWN
     Route: 065
  4. CYCLIZINE [Suspect]
     Dosage: 1 DF, UNKNOWN
     Route: 065
  5. METHADONE [Suspect]
     Indication: PAIN
     Dosage: 5 MG, BID
     Route: 065
     Dates: start: 20120501
  6. GABAPENTIN [Suspect]
     Indication: PAIN
     Dosage: 1 DF, UNKNOWN
     Route: 065

REACTIONS (2)
  - Toxicity to various agents [Fatal]
  - Abdominal pain [Unknown]
